FAERS Safety Report 10628320 (Version 1)
Quarter: 2014Q4

REPORT INFORMATION
  Report Type: Spontaneous
  Country: US (occurrence: None)
  Receive Date: 20141203
  Receipt Date: 20141203
  Transmission Date: 20150529
  Serious: Yes (Other)
  Sender: FDA-Public Use
  Company Number: None

PATIENT
  Age: 79 Year
  Sex: Female
  Weight: 55.79 kg

DRUGS (17)
  1. COATED ASPIRIN [Concomitant]
  2. PANTOPRAZOLE SOD (DIGOXIN) [Concomitant]
  3. STOOL SOFTENER [Concomitant]
     Active Substance: DOCUSATE CALCIUM
  4. NORVASC (AMLODIPINE) [Concomitant]
  5. MULT IN VIT. [Concomitant]
  6. CRANBERRY. [Concomitant]
     Active Substance: CRANBERRY
  7. VITAMIN E [Concomitant]
     Active Substance: .ALPHA.-TOCOPHEROL
  8. TYLENOL [Concomitant]
     Active Substance: ACETAMINOPHEN
  9. LEVOTHYROXINE [Concomitant]
     Active Substance: LEVOTHYROXINE
  10. ATORVASTATIN (LIPITOR) [Concomitant]
  11. FISH OIL [Concomitant]
     Active Substance: FISH OIL
  12. ATORVASTATIN [Suspect]
     Active Substance: ATORVASTATIN
     Indication: ISCHAEMIC HEART DISEASE PROPHYLAXIS
     Dosage: 20 MG ?1 NITE CRAMPS NIGHT LEG?ONCE?BEDTIME?BY MOUTH
     Route: 048
     Dates: start: 20110311, end: 20141110
  13. ATENOLOL. [Concomitant]
     Active Substance: ATENOLOL
  14. ATORVASTATIN [Suspect]
     Active Substance: ATORVASTATIN
     Indication: BLOOD CHOLESTEROL ABNORMAL
     Dosage: 20 MG ?1 NITE CRAMPS NIGHT LEG?ONCE?BEDTIME?BY MOUTH
     Route: 048
     Dates: start: 20110311, end: 20141110
  15. HYDROCHLOROTHIAZIDE. [Concomitant]
     Active Substance: HYDROCHLOROTHIAZIDE
  16. I-CAP [Concomitant]
  17. CALCIUM +D [Concomitant]
     Active Substance: CALCIUM\VITAMIN D

REACTIONS (7)
  - Fatigue [None]
  - Muscle spasms [None]
  - Insomnia [None]
  - Vision blurred [None]
  - Pain in extremity [None]
  - Muscular weakness [None]
  - Sleep disorder [None]

NARRATIVE: CASE EVENT DATE: 201203
